FAERS Safety Report 11653478 (Version 1)
Quarter: 2015Q4

REPORT INFORMATION
  Report Type: Spontaneous
  Country: US (occurrence: US)
  Receive Date: 20151022
  Receipt Date: 20151022
  Transmission Date: 20160304
  Serious: Yes (Other)
  Sender: FDA-Public Use
  Company Number: US-BAYER-2015-446425

PATIENT
  Age: 46 Year
  Sex: Female

DRUGS (1)
  1. CIPRO [Suspect]
     Active Substance: CIPROFLOXACIN HYDROCHLORIDE
     Indication: ALLERGIC BRONCHITIS
     Dosage: 500 MG, BID
     Dates: start: 20141001, end: 20141010

REACTIONS (1)
  - Tendon rupture [None]
